FAERS Safety Report 14454130 (Version 2)
Quarter: 2018Q2

REPORT INFORMATION
  Report Type: Spontaneous
  Country: US (occurrence: US)
  Receive Date: 20180129
  Receipt Date: 20180412
  Transmission Date: 20180711
  Serious: Yes (Hospitalization)
  Sender: FDA-Public Use
  Company Number: US-PFIZER INC-2018033180

PATIENT
  Age: 12 Year
  Sex: Male

DRUGS (2)
  1. GENOTROPIN [Suspect]
     Active Substance: SOMATROPIN
     Dosage: 1.8 MG ALT WITH 2 MG, QD
     Route: 058
     Dates: start: 20171031
  2. GENOTROPIN [Suspect]
     Active Substance: SOMATROPIN
     Dosage: 1.9 MG, DAILY (7 DAYS A WEEK)
     Route: 058
     Dates: start: 20171031

REACTIONS (2)
  - Lumbar vertebral fracture [Unknown]
  - Irregular sleep wake rhythm disorder [Unknown]
